FAERS Safety Report 8267276-4 (Version None)
Quarter: 2012Q2

REPORT INFORMATION
  Report Type: 
  Country: None (occurrence: None)
  Receive Date: 20120405
  Receipt Date: 20120405
  Transmission Date: 20120825
  Serious: Yes (Other)
  Sender: FDA-Public Use
  Company Number: None

PATIENT
  Sex: Female
  Weight: 99.3377 kg

DRUGS (2)
  1. RIBAVIRIN [Suspect]
     Indication: HEPATITIS C
     Dosage: 600MG BID PO; SQ
     Route: 048
     Dates: start: 20120206, end: 20120401
  2. PEG-INTRON [Suspect]
     Indication: HEPATITIS C
     Dosage: 150MCG QW PO
     Route: 048
     Dates: start: 20120206, end: 20120401

REACTIONS (3)
  - ABDOMINAL PAIN UPPER [None]
  - DIARRHOEA [None]
  - INSOMNIA [None]
